FAERS Safety Report 12603259 (Version 2)
Quarter: 2016Q3

REPORT INFORMATION
  Report Type: Report from Study
  Country: JP (occurrence: JP)
  Receive Date: 20160728
  Receipt Date: 20160922
  Transmission Date: 20161109
  Serious: Yes (Hospitalization)
  Sender: FDA-Public Use
  Company Number: JP-ROCHE-1647823

PATIENT
  Age: 60 Year
  Sex: Male
  Weight: 63.5 kg

DRUGS (10)
  1. ATEZOLIZUMAB [Suspect]
     Active Substance: ATEZOLIZUMAB
     Indication: NON-SMALL CELL LUNG CANCER
     Dosage: DATE OF LAST DOSE PRIOR TO SAE - 14/OCT/2015, 12/NOV/2015, 03/DEC/2015
     Route: 042
     Dates: start: 20151014
  2. NAB-PACLITAXEL [Suspect]
     Active Substance: PACLITAXEL
     Indication: NON-SMALL CELL LUNG CANCER
     Dosage: DATE OF LAST DOSE PRIOR TO SAE - 21/OCT/2015, 12/NOV/2015 , 19/NOV/2015?DATE OF LAST DOSE (130MG) PR
     Route: 042
     Dates: start: 20151014
  3. ADONA (JAPAN) [Concomitant]
     Indication: HAEMOPTYSIS
     Route: 065
     Dates: start: 20151021
  4. PASTARON [Concomitant]
     Active Substance: UREA
     Indication: TINEA INFECTION
     Dosage: SOFT OINTMENT
     Route: 065
  5. PROEMEND [Concomitant]
     Active Substance: FOSAPREPITANT
     Dosage: PROPHYLAXIS FOR NAUSEA AND VOMITING
     Route: 065
     Dates: start: 20151112, end: 20151112
  6. ALOXI [Concomitant]
     Active Substance: PALONOSETRON HYDROCHLORIDE
     Indication: PROPHYLAXIS
     Dosage: INFUSION BAG 0.75 MG
     Route: 042
     Dates: start: 20151014, end: 20151014
  7. ATOLANT [Concomitant]
     Indication: TINEA INFECTION
  8. TRANSAMIN [Concomitant]
     Active Substance: TRANEXAMIC ACID
     Indication: HAEMOPTYSIS
     Route: 065
     Dates: start: 20151021
  9. PROEMEND [Concomitant]
     Active Substance: FOSAPREPITANT
     Indication: PROPHYLAXIS
     Dosage: PROPHYLAXIS FOR NAUSEA AND VOMITING
     Route: 065
     Dates: start: 20151014, end: 20151014
  10. CARBOPLATIN. [Suspect]
     Active Substance: CARBOPLATIN
     Indication: NON-SMALL CELL LUNG CANCER
     Dosage: DATE OF LAST DOSE PRIOR TO SAE - 14/OCT/2015, 12/NOV/2015?DATE OF LAST DOSE (623MG) PRIOR TO SAE: 03
     Route: 042
     Dates: start: 20151014

REACTIONS (2)
  - Influenza like illness [Recovered/Resolved]
  - Pericardial effusion [Recovered/Resolved]

NARRATIVE: CASE EVENT DATE: 20151016
